FAERS Safety Report 15080727 (Version 2)
Quarter: 2020Q4

REPORT INFORMATION
  Report Type: Spontaneous
  Country: ES (occurrence: ES)
  Receive Date: 20180628
  Receipt Date: 20201008
  Transmission Date: 20210113
  Serious: Yes (Hospitalization, Other)
  Sender: FDA-Public Use
  Company Number: ES-MACLEODS PHARMACEUTICALS US LTD-MAC2018014360

PATIENT

DRUGS (8)
  1. BIPERIDEN [Interacting]
     Active Substance: BIPERIDEN
     Indication: SCHIZOPHRENIA
     Dosage: 1 DOSAGE FORM, SLOW RELEASE TABLET, 24 HOUR
     Route: 065
  2. DIAZEPAM. [Interacting]
     Active Substance: DIAZEPAM
     Dosage: 7.5 MILLIGRAM MORE OF DIAZEPAM WAS ADMINISTERED
     Route: 065
     Dates: start: 201612
  3. DIAZEPAM. [Interacting]
     Active Substance: DIAZEPAM
     Indication: EXTRAPYRAMIDAL DISORDER
     Dosage: 5 MILLIGRAM, QD
     Route: 065
     Dates: start: 201612
  4. FLUPHENAZINE DECANOATE. [Interacting]
     Active Substance: FLUPHENAZINE DECANOATE
     Indication: SCHIZOPHRENIA
     Dosage: 25 MILLIGRAM, FOR 6 YEARS UP TO DATE (1 VIAL OF 25 MG EVERY 4 WEEKS)
     Route: 065
  5. QUETIAPINE 300MG TABLET [Suspect]
     Active Substance: QUETIAPINE
     Indication: SCHIZOPHRENIA
     Dosage: 1 DOSAGE FORM, QD,FOR 6 YEARS UP TO DATE
     Route: 065
  6. BIPERIDEN [Interacting]
     Active Substance: BIPERIDEN
     Indication: EXTRAPYRAMIDAL DISORDER
     Dosage: 8 MILLIGRAM, QD, BE INCREASED FOR 4 DAYS
     Route: 048
     Dates: start: 201612
  7. BIPERIDEN [Interacting]
     Active Substance: BIPERIDEN
     Dosage: 5 MG, 1 VIAL OF 5 MG, EVERY 4 WEEKS ,FOR 6 YEARS UP TO DATE
     Route: 065
  8. ATORVASTATIN 10 MG [Interacting]
     Active Substance: ATORVASTATIN
     Indication: DYSLIPIDAEMIA
     Dosage: 10 MILLIGRAM, QD
     Route: 065
     Dates: start: 201305

REACTIONS (4)
  - Toxicity to various agents [Recovered/Resolved]
  - Drug interaction [Recovered/Resolved]
  - Rhabdomyolysis [Recovered/Resolved]
  - Neuromuscular toxicity [Recovered/Resolved]

NARRATIVE: CASE EVENT DATE: 201612
